FAERS Safety Report 8097039-4 (Version None)
Quarter: 2012Q1

REPORT INFORMATION
  Report Type: 
  Country: None (occurrence: None)
  Receive Date: 20120129
  Receipt Date: 20111206
  Transmission Date: 20120608
  Serious: No
  Sender: FDA-Public Use
  Company Number: US-ABBOTT-11P-163-0881118-00

PATIENT
  Age: 72 Year
  Sex: Male

DRUGS (5)
  1. CANASA [Concomitant]
     Indication: CROHN'S DISEASE
  2. VENTOLIN [Concomitant]
     Indication: DYSPNOEA
     Dosage: TWICE DAILY, AS NEEDED
  3. LISINOPRIL [Concomitant]
     Indication: HYPERTENSION
     Dosage: 12/12.5, DAILY
  4. TOPROL-XL [Concomitant]
     Indication: HYPERTENSION
  5. HUMIRA [Suspect]
     Indication: CROHN'S DISEASE
     Dates: start: 20111012

REACTIONS (2)
  - LIP SWELLING [None]
  - BRONCHITIS [None]
